FAERS Safety Report 8215716-9 (Version None)
Quarter: 2012Q1

REPORT INFORMATION
  Report Type: 
  Country: None (occurrence: None)
  Receive Date: 20120316
  Receipt Date: 20120301
  Transmission Date: 20120608
  Serious: Yes (Other)
  Sender: FDA-Public Use
  Company Number: CHPA2012US004333

PATIENT
  Age: 24 Year
  Sex: Male

DRUGS (2)
  1. BENEFIBER SUGAR FREE [Suspect]
     Indication: CONSTIPATION
     Dosage: 2 DF, QD (ALTERNATING WITH BENEFIBER STICK PACKS)
     Route: 048
     Dates: start: 20110920, end: 20120224
  2. BENEFIBER STICK PACKS [Suspect]
     Indication: CONSTIPATION
     Dosage: 1 DF, QD (ALTERNATING WITH BENEFIBER SUGAR FREE)
     Route: 048
     Dates: start: 20110920, end: 20120224

REACTIONS (13)
  - IRRITABILITY [None]
  - HYPOAESTHESIA [None]
  - AGGRESSION [None]
  - URTICARIA [None]
  - OFF LABEL USE [None]
  - HEADACHE [None]
  - PERIPHERAL COLDNESS [None]
  - DRUG DEPENDENCE [None]
  - DEPRESSION [None]
  - ABDOMINAL PAIN UPPER [None]
  - PANIC ATTACK [None]
  - ANGER [None]
  - SOMNOLENCE [None]
